FAERS Safety Report 20875749 (Version 1)
Quarter: 2022Q2

REPORT INFORMATION
  Report Type: Spontaneous
  Country: US (occurrence: US)
  Receive Date: 20220526
  Receipt Date: 20220526
  Transmission Date: 20220721
  Serious: No
  Sender: FDA-Public Use
  Company Number: US-BAUSCH-BL-2022-012338

PATIENT
  Sex: Female

DRUGS (2)
  1. ALAWAY [Suspect]
     Active Substance: KETOTIFEN FUMARATE
     Indication: Hypersensitivity
     Route: 047
  2. ALAWAY [Suspect]
     Active Substance: KETOTIFEN FUMARATE
     Route: 047

REACTIONS (2)
  - Therapeutic product effect incomplete [Unknown]
  - Product quality issue [Unknown]
